FAERS Safety Report 18810498 (Version 3)
Quarter: 2022Q1

REPORT INFORMATION
  Report Type: Spontaneous
  Country: US (occurrence: US)
  Receive Date: 20210129
  Receipt Date: 20220216
  Transmission Date: 20220423
  Serious: Yes (Other)
  Sender: FDA-Public Use
  Company Number: US-PFIZER INC-2021070407

PATIENT
  Age: 72 Year
  Sex: Female

DRUGS (1)
  1. XELJANZ XR [Suspect]
     Active Substance: TOFACITINIB CITRATE
     Indication: Arthritis
     Dosage: 11 MG

REACTIONS (22)
  - Psoriatic arthropathy [Unknown]
  - Polyarthritis [Unknown]
  - Bone fissure [Unknown]
  - Therapeutic product effect incomplete [Unknown]
  - Limb discomfort [Unknown]
  - Pain in extremity [Unknown]
  - Illness [Unknown]
  - Influenza [Unknown]
  - Fatigue [Unknown]
  - Fibromyalgia [Unknown]
  - Muscular weakness [Unknown]
  - Myalgia [Unknown]
  - Neck pain [Unknown]
  - Arthralgia [Unknown]
  - Dry eye [Unknown]
  - Dry mouth [Unknown]
  - Osteoporosis [Unknown]
  - Sleep disorder [Unknown]
  - Spondyloarthropathy [Unknown]
  - Back pain [Unknown]
  - Fall [Unknown]
  - Sciatica [Unknown]

NARRATIVE: CASE EVENT DATE: 20211001
